FAERS Safety Report 5176864-3 (Version None)
Quarter: 2006Q4

REPORT INFORMATION
  Report Type: 
  Country: None (occurrence: None)
  Receive Date: 20061218
  Receipt Date: 20061119
  Transmission Date: 20070319
  Serious: Yes (Hospitalization, Other)
  Sender: FDA-Public Use
  Company Number: PHFR2006GB03428

PATIENT
  Age: 32 Year
  Sex: Female

DRUGS (6)
  1. CLOZARIL [Suspect]
     Indication: SCHIZOPHRENIA
     Dosage: 75MG DAILY
     Route: 048
     Dates: start: 20061112
  2. RISPERIDONE [Concomitant]
     Indication: SCHIZOPHRENIA
     Dosage: 6MG / DAY
     Route: 048
     Dates: start: 20060705
  3. DEPAKOTE [Concomitant]
     Indication: MOOD ALTERED
     Dosage: 2G / DAY
     Route: 048
     Dates: start: 20060807
  4. DIAZEPAM [Concomitant]
     Indication: AGGRESSION
     Dosage: 30MG / DAY
     Route: 048
     Dates: start: 20061117
  5. HYOSCINE HBR HYT [Concomitant]
     Indication: SALIVARY HYPERSECRETION
     Dosage: 900MCG / DAY
     Route: 048
     Dates: start: 20061009
  6. ACETAMINOPHEN [Concomitant]
     Indication: PYREXIA
     Dosage: 4 G, PRN
     Route: 048
     Dates: start: 20061026

REACTIONS (4)
  - C-REACTIVE PROTEIN INCREASED [None]
  - DIZZINESS [None]
  - DYSPNOEA [None]
  - PNEUMONIA ASPIRATION [None]
